FAERS Safety Report 8769917 (Version 3)
Quarter: 2012Q4

REPORT INFORMATION
  Report Type: 
  Country: US (occurrence: US)
  Receive Date: 20120906
  Receipt Date: 20121207
  Transmission Date: 20130627
  Serious: Yes (Hospitalization, Other)
  Sender: FDA-Public Use
  Company Number: US-ELI_LILLY_AND_COMPANY-US201208008448

PATIENT
  Age: 71 None
  Sex: Male
  Weight: 103 kg

DRUGS (14)
  1. HUMALOG LISPRO [Suspect]
     Indication: DIABETES MELLITUS
     Dosage: UNK, prn
     Route: 058
     Dates: start: 2009
  2. LANTUS [Concomitant]
     Indication: TYPE 2 DIABETES MELLITUS
     Dosage: 40 u, qd
     Route: 058
  3. LANTUS [Concomitant]
     Dosage: 40 u, qd
     Route: 058
  4. ASPIRIN [Concomitant]
     Dosage: 81 mg, qd
  5. CIALIS [Concomitant]
     Dosage: 20 mg, prn
  6. FENOFIBRATE [Concomitant]
     Dosage: 43 mg, qd
     Route: 048
  7. FLONASE [Concomitant]
     Dosage: 200 ug, qd
  8. IMITREX [Concomitant]
     Route: 058
  9. LIPITOR [Concomitant]
     Dosage: 40 mg, qd
  10. LOVAZA [Concomitant]
     Dosage: 1 g, bid
  11. OXYBUTYNIN CHLORIDE [Concomitant]
     Dosage: 5 mg, qd
     Route: 048
  12. TAMSULOSIN [Concomitant]
     Dosage: 0.4 mg, qd
  13. ULTRAM [Concomitant]
     Indication: ARTHRALGIA
     Dosage: 200 mg, qd
  14. ZYRTEC [Concomitant]
     Indication: SEASONAL ALLERGY
     Dosage: 10 mg, qd

REACTIONS (5)
  - Renal failure [Recovered/Resolved]
  - Renal failure chronic [Not Recovered/Not Resolved]
  - Pancreatic insufficiency [Recovered/Resolved]
  - Blood glucose increased [Recovering/Resolving]
  - Drug ineffective [Unknown]
